FAERS Safety Report 11930248 (Version 1)
Quarter: 2016Q1

REPORT INFORMATION
  Report Type: Spontaneous
  Country: IT (occurrence: IT)
  Receive Date: 20160120
  Receipt Date: 20160120
  Transmission Date: 20160526
  Serious: Yes (Death, Other)
  Sender: FDA-Public Use
  Company Number: IT-FRESENIUS KABI-FK201600335

PATIENT
  Age: 61 Year
  Sex: Male

DRUGS (2)
  1. TRETINOIN. [Concomitant]
     Active Substance: TRETINOIN
  2. IDARUBICIN HYDROCHLORIDE (MANUFACTURER UNKNOWN) [Suspect]
     Active Substance: IDARUBICIN HYDROCHLORIDE
     Indication: ACUTE PROMYELOCYTIC LEUKAEMIA
     Route: 065

REACTIONS (4)
  - Ventricular fibrillation [Unknown]
  - Medication error [Unknown]
  - Cardiogenic shock [Fatal]
  - Overdose [Unknown]
